FAERS Safety Report 15790796 (Version 1)
Quarter: 2018Q4

REPORT INFORMATION
  Report Type: Spontaneous
  Country: US (occurrence: US)
  Receive Date: 20181213
  Receipt Date: 20181213
  Transmission Date: 20190205
  Serious: No
  Sender: FDA-Public Use
  Company Number: None

PATIENT
  Age: 75 Year
  Sex: Male
  Weight: 88.45 kg

DRUGS (6)
  1. INGREZZA [Suspect]
     Active Substance: VALBENAZINE
     Indication: TARDIVE DYSKINESIA
     Dosage: ?          QUANTITY:40 MG MILLIGRAM(S);OTHER FREQUENCY:ONCE DAY AM;?
     Route: 048
     Dates: start: 20181101
  2. LISINOPRIL. [Concomitant]
     Active Substance: LISINOPRIL
  3. DULOXETINE. [Concomitant]
     Active Substance: DULOXETINE
  4. TAMSULOSIN [Concomitant]
     Active Substance: TAMSULOSIN
  5. PILOCARPINE. [Concomitant]
     Active Substance: PILOCARPINE
  6. SIMVASTATIN. [Concomitant]
     Active Substance: SIMVASTATIN

REACTIONS (1)
  - Insomnia [None]

NARRATIVE: CASE EVENT DATE: 20181101
